FAERS Safety Report 8498484-5 (Version None)
Quarter: 2012Q3

REPORT INFORMATION
  Report Type: 
  Country: None (occurrence: None)
  Receive Date: 20120709
  Receipt Date: 20120625
  Transmission Date: 20120928
  Serious: No
  Sender: FDA-Public Use
  Company Number: US-AMGEN-USASP2012036682

PATIENT
  Age: 77 Year
  Sex: Female
  Weight: 71.882 kg

DRUGS (7)
  1. LASIX [Concomitant]
     Dosage: 40 MG, QD
  2. ENBREL [Suspect]
     Indication: RHEUMATOID ARTHRITIS
     Dosage: 50 MG, QWK
     Route: 058
     Dates: start: 20120524
  3. MULTI-VITAMINS [Concomitant]
  4. FOLIC ACID [Concomitant]
     Dosage: UNK
  5. POTASSIUM CHLORIDE [Concomitant]
     Dosage: UNK. DAILY
  6. LORTAB                             /00917501/ [Concomitant]
  7. METHOTREXATE [Concomitant]

REACTIONS (10)
  - VITAMIN D DEFICIENCY [None]
  - INTERVERTEBRAL DISC DEGENERATION [None]
  - RHEUMATOID ARTHRITIS [None]
  - ARTHRALGIA [None]
  - TUBERCULIN TEST POSITIVE [None]
  - MUSCULOSKELETAL STIFFNESS [None]
  - OEDEMA PERIPHERAL [None]
  - GASTROOESOPHAGEAL REFLUX DISEASE [None]
  - GAIT DISTURBANCE [None]
  - OSTEOPENIA [None]
